FAERS Safety Report 17145794 (Version 2)
Quarter: 2020Q4

REPORT INFORMATION
  Report Type: Other
  Country: US (occurrence: US)
  Receive Date: 20191212
  Receipt Date: 20201215
  Transmission Date: 20210113
  Serious: Yes (Other)
  Sender: FDA-Public Use
  Company Number: US-ROCHE-2490479

PATIENT
  Sex: Female

DRUGS (2)
  1. OCREVUS [Suspect]
     Active Substance: OCRELIZUMAB
     Dosage: (PRESCRIBED AS 300 MG ON DAY 1 AND DAY 15 AND 600 MG ONCE IN 6 MONTHS)
     Route: 042
  2. OCREVUS [Suspect]
     Active Substance: OCRELIZUMAB
     Indication: RELAPSING MULTIPLE SCLEROSIS
     Route: 042
     Dates: start: 20180523

REACTIONS (2)
  - Weight increased [Not Recovered/Not Resolved]
  - Urinary tract infection [Unknown]
